FAERS Safety Report 9685452 (Version 1)
Quarter: 2013Q4

REPORT INFORMATION
  Report Type: Not Available
  Country: GB (occurrence: GB)
  Receive Date: 20131113
  Receipt Date: 20131113
  Transmission Date: 20140711
  Serious: Yes (Hospitalization)
  Sender: FDA-Public Use
  Company Number: GB-ASTELLAS-2013EU009703

PATIENT
  Age: 60 Year
  Sex: 0

DRUGS (1)
  1. MICAFUNGIN [Suspect]
     Dosage: 150 DF, UNKNOWN/D
     Route: 041
     Dates: start: 20131014, end: 20131016

REACTIONS (2)
  - Hyponatraemia [Recovered/Resolved]
  - Inappropriate antidiuretic hormone secretion [Unknown]
